FAERS Safety Report 5655602-1 (Version None)
Quarter: 2008Q1

REPORT INFORMATION
  Report Type: 
  Country: None (occurrence: None)
  Receive Date: 20080307
  Receipt Date: 20080228
  Transmission Date: 20080703
  Serious: Yes (Other)
  Sender: FDA-Public Use
  Company Number: SG-ABBOTT-08P-141-0440543-00

PATIENT

DRUGS (1)
  1. SIBUTRAMINE [Suspect]
     Indication: WEIGHT CONTROL
     Dosage: NOT REPORTED

REACTIONS (2)
  - CATATONIA [None]
  - PSYCHOTIC DISORDER [None]
